FAERS Safety Report 8951003 (Version 2)
Quarter: 2013Q1

REPORT INFORMATION
  Report Type: Spontaneous
  Country: DK (occurrence: None)
  Receive Date: 20121129
  Receipt Date: 20130117
  Transmission Date: 20140127
  Serious: Yes (Life-Threatening)
  Sender: FDA-Public Use
  Company Number: 2012MA013584

PATIENT
  Age: 68 Year
  Sex: Male

DRUGS (7)
  1. IRINOTECAN HYDROCHLORIDE [Suspect]
     Indication: COLORECTAL CANCER METASTATIC
     Route: 042
     Dates: start: 20121022
  2. IRINOTECAN HYDROCHLORIDE [Suspect]
     Route: 042
     Dates: start: 20121022
  3. CAPECITABINE [Suspect]
     Indication: COLORECTAL CANCER METASTATIC
     Route: 048
     Dates: start: 20121022
  4. ONDANSETRON [Concomitant]
     Indication: PRODUCT USED FOR UNKNOWN INDICATION
  5. DEXAMETHASONE [Concomitant]
  6. HYOSCINE HYDROBROMIDE [Concomitant]
  7. DOMPERIDONE [Concomitant]

REACTIONS (1)
  - Cerebrovascular accident [None]
